FAERS Safety Report 16856603 (Version 2)
Quarter: 2019Q4

REPORT INFORMATION
  Report Type: Spontaneous
  Country: AU (occurrence: AU)
  Receive Date: 20190926
  Receipt Date: 20191004
  Transmission Date: 20200122
  Serious: Yes (Other)
  Sender: FDA-Public Use
  Company Number: AU-REGENERON PHARMACEUTICALS, INC.-2019-54933

PATIENT

DRUGS (2)
  1. EYLEA [Suspect]
     Active Substance: AFLIBERCEPT
     Indication: DIABETIC RETINAL OEDEMA
     Dosage: LEFT EYE
     Route: 031
     Dates: start: 20190819, end: 20190819
  2. EYLEA [Suspect]
     Active Substance: AFLIBERCEPT
     Dosage: LEFT EYE
     Route: 031
     Dates: start: 20190910, end: 20190910

REACTIONS (2)
  - Eye haemorrhage [Unknown]
  - Retinal detachment [Unknown]
